FAERS Safety Report 4880525-5 (Version None)
Quarter: 2006Q1

REPORT INFORMATION
  Report Type: 
  Country: None (occurrence: None)
  Receive Date: 20060113
  Receipt Date: 20050304
  Transmission Date: 20060701
  Serious: Yes (Hospitalization, Disabling)
  Sender: FDA-Public Use
  Company Number: US-MERCK-0503USA01028

PATIENT
  Age: 49 Year
  Sex: Male
  Weight: 134 kg

DRUGS (4)
  1. VIOXX [Suspect]
     Indication: PAIN
     Route: 048
     Dates: start: 20001101, end: 20010901
  2. VIOXX [Suspect]
     Route: 048
     Dates: start: 20020101, end: 20040801
  3. AVANDIA [Concomitant]
     Route: 065
  4. INSULIN [Concomitant]
     Route: 065

REACTIONS (3)
  - ARTHRALGIA [None]
  - BACK PAIN [None]
  - MYOCARDIAL INFARCTION [None]
